FAERS Safety Report 23609408 (Version 5)
Quarter: 2025Q3

REPORT INFORMATION
  Report Type: Spontaneous
  Country: JP (occurrence: JP)
  Receive Date: 20240308
  Receipt Date: 20250827
  Transmission Date: 20251020
  Serious: Yes (Death, Life-Threatening, Other)
  Sender: GENMAB
  Company Number: JP-GENMAB-2024-00692

PATIENT
  Age: 76 Year
  Sex: Female
  Weight: 47 kg

DRUGS (21)
  1. EPKINLY [Suspect]
     Active Substance: EPCORITAMAB-BYSP
     Indication: Diffuse large B-cell lymphoma recurrent
     Route: 058
     Dates: start: 20240212, end: 20240212
  2. EPKINLY [Suspect]
     Active Substance: EPCORITAMAB-BYSP
     Route: 058
     Dates: start: 20240219, end: 20240219
  3. EPKINLY [Suspect]
     Active Substance: EPCORITAMAB-BYSP
     Dosage: 48 MILLIGRAM, WEEKLY, UP TO CYCLE 3
     Route: 058
     Dates: start: 20240226, end: 202405
  4. DIPHENHYDRAMINE [Suspect]
     Active Substance: DIPHENHYDRAMINE
     Indication: Prophylaxis
     Route: 048
     Dates: start: 20240212, end: 2024
  5. PREDONINE [Suspect]
     Active Substance: PREDNISOLONE
     Indication: Prophylaxis
     Route: 048
     Dates: start: 20240212, end: 2024
  6. CALONAL [Suspect]
     Active Substance: ACETAMINOPHEN
     Indication: Prophylaxis
     Route: 048
     Dates: start: 20240212, end: 2024
  7. DEXAMETHASONE SODIUM PHOSPHATE [Concomitant]
     Active Substance: DEXAMETHASONE SODIUM PHOSPHATE
  8. ISOTONIC SODIUM CHLORIDE SOLUTION [Concomitant]
     Active Substance: SODIUM CHLORIDE
  9. CYMBALTA [Concomitant]
     Active Substance: DULOXETINE HYDROCHLORIDE
     Route: 048
  10. ZOVIRAX ACTIVE [Concomitant]
     Route: 048
  11. MIROGABALIN BESYLATE [Concomitant]
     Active Substance: MIROGABALIN BESYLATE
     Route: 048
  12. TOCOPHERYL NICOTINATE, D-.ALPHA. [Concomitant]
     Active Substance: TOCOPHERYL NICOTINATE, D-.ALPHA.
     Route: 048
  13. SENNA LEAF [Concomitant]
     Active Substance: SENNA LEAF
     Route: 048
  14. DAYVIGO [Concomitant]
     Active Substance: LEMBOREXANT
     Route: 048
  15. HALCION [Concomitant]
     Active Substance: TRIAZOLAM
     Route: 048
  16. ROZEREM [Concomitant]
     Active Substance: RAMELTEON
     Route: 048
  17. CELECOXIB [Concomitant]
     Active Substance: CELECOXIB
     Route: 048
  18. ELOBIXIBAT [Concomitant]
     Active Substance: ELOBIXIBAT
     Route: 048
  19. FEBUXOSTAT [Concomitant]
     Active Substance: FEBUXOSTAT
     Route: 048
  20. FAMOTIDINE [Concomitant]
     Active Substance: FAMOTIDINE
     Route: 048
  21. CEFEPIME [Concomitant]
     Active Substance: CEFEPIME HYDROCHLORIDE
     Indication: C-reactive protein increased
     Dates: start: 20240201, end: 20240206

REACTIONS (8)
  - Cytokine release syndrome [Recovering/Resolving]
  - Immune effector cell-associated neurotoxicity syndrome [Unknown]
  - Diffuse large B-cell lymphoma recurrent [Fatal]
  - Hepatic function abnormal [Unknown]
  - Dysarthria [Recovered/Resolved]
  - Somnolence [Recovered/Resolved]
  - Somnolence [Recovered/Resolved]
  - Somnolence [Recovered/Resolved]

NARRATIVE: CASE EVENT DATE: 20240212
